FAERS Safety Report 5720224-0 (Version None)
Quarter: 2008Q2

REPORT INFORMATION
  Report Type: 
  Country: None (occurrence: None)
  Receive Date: 20080428
  Receipt Date: 20071002
  Transmission Date: 20081010
  Serious: No
  Sender: FDA-Public Use
  Company Number: US-AMGEN-US245927

PATIENT

DRUGS (1)
  1. SENSIPAR [Suspect]
     Indication: HYPERPARATHYROIDISM SECONDARY
     Route: 065
     Dates: start: 20070901

REACTIONS (2)
  - MUSCULAR WEAKNESS [None]
  - PAIN IN EXTREMITY [None]
